FAERS Safety Report 15556453 (Version 1)
Quarter: 2018Q4

REPORT INFORMATION
  Report Type: Report from Study
  Country: US (occurrence: US)
  Receive Date: 20181026
  Receipt Date: 20181026
  Transmission Date: 20190205
  Serious: Yes (Other)
  Sender: FDA-Public Use
  Company Number: US-ALEXION PHARMACEUTICALS INC.-A201814000

PATIENT
  Sex: Male

DRUGS (1)
  1. SOLIRIS [Suspect]
     Active Substance: ECULIZUMAB
     Indication: PAROXYSMAL NOCTURNAL HAEMOGLOBINURIA
     Dosage: UNK
     Route: 065

REACTIONS (7)
  - Ocular icterus [Unknown]
  - Vomiting [Unknown]
  - Blood count abnormal [Unknown]
  - Dysphagia [Unknown]
  - Dehydration [Unknown]
  - Chromaturia [Unknown]
  - Lip discolouration [Unknown]
